FAERS Safety Report 11466366 (Version 2)
Quarter: 2015Q3

REPORT INFORMATION
  Report Type: Spontaneous
  Country: KR (occurrence: KR)
  Receive Date: 20150907
  Receipt Date: 20150911
  Transmission Date: 20151125
  Serious: Yes (Hospitalization)
  Sender: FDA-Public Use
  Company Number: KR-AMGEN-KORCT2015091256

PATIENT
  Age: 46 Year
  Sex: Male
  Weight: 72.6 kg

DRUGS (12)
  1. G-LASTA [Suspect]
     Active Substance: PEGFILGRASTIM
     Indication: FEBRILE NEUTROPENIA
     Dosage: 6 MG, 1X/3WEEKS
     Route: 058
     Dates: start: 20150724
  2. CYCLOPHOSPHAMIDE. [Concomitant]
     Active Substance: CYCLOPHOSPHAMIDE
     Dosage: 1425 MG, UNK
     Route: 042
     Dates: start: 20150817, end: 20150817
  3. PREDNISOLONE. [Concomitant]
     Active Substance: PREDNISOLONE
     Dosage: 90 MG, UNK
     Route: 048
     Dates: start: 20150817, end: 20150817
  4. G-LASTA [Suspect]
     Active Substance: PEGFILGRASTIM
     Dosage: 6 MG, 1X/3WEEKS
     Route: 058
     Dates: start: 20150818
  5. RITUXIMAB [Concomitant]
     Active Substance: RITUXIMAB
     Dosage: 712.5 MG, UNK
     Route: 042
     Dates: start: 20150817, end: 20150817
  6. DOXORUBICIN [Concomitant]
     Active Substance: DOXORUBICIN
     Dosage: 96.5 MG, UNK
     Route: 042
     Dates: start: 20150723, end: 20150723
  7. DOXORUBICIN [Concomitant]
     Active Substance: DOXORUBICIN
     Dosage: 95 MG, UNK
     Route: 042
     Dates: start: 20150817, end: 20150817
  8. RITUXIMAB [Concomitant]
     Active Substance: RITUXIMAB
     Dosage: 723.75 MG, UNK
     Route: 042
     Dates: start: 20150723, end: 20150723
  9. PREDNISOLONE. [Concomitant]
     Active Substance: PREDNISOLONE
     Dosage: 50 MG, UNK
     Route: 048
     Dates: start: 20150722, end: 20150722
  10. VINCRISTINE [Concomitant]
     Active Substance: VINCRISTINE
     Dosage: 1.97 MG, UNK
     Route: 042
     Dates: start: 20150817, end: 20150817
  11. CYCLOPHOSPHAMIDE. [Concomitant]
     Active Substance: CYCLOPHOSPHAMIDE
     Dosage: 1447.5 MG, UNK
     Route: 042
     Dates: start: 20150723, end: 20150723
  12. VINCRISTINE [Concomitant]
     Active Substance: VINCRISTINE
     Dosage: 2 MG, UNK
     Route: 042
     Dates: start: 20150723, end: 20150723

REACTIONS (1)
  - Neutropenia [Recovered/Resolved]

NARRATIVE: CASE EVENT DATE: 20150827
